FAERS Safety Report 6529149-4 (Version None)
Quarter: 2010Q1

REPORT INFORMATION
  Report Type: 
  Country: None (occurrence: None)
  Receive Date: 20100107
  Receipt Date: 20091229
  Transmission Date: 20100710
  Serious: Yes (Hospitalization, Other)
  Sender: FDA-Public Use
  Company Number: US-CELGENEUS-163-21880-09121152

PATIENT
  Sex: Female
  Weight: 48.578 kg

DRUGS (20)
  1. REVLIMID [Suspect]
     Indication: MULTIPLE MYELOMA
     Route: 048
     Dates: start: 20091109, end: 20091118
  2. REVLIMID [Suspect]
     Route: 048
     Dates: start: 20080201
  3. TRIAMCINOLONE [Concomitant]
     Indication: PRURITUS
     Route: 061
     Dates: start: 20090101
  4. PROGRAF [Concomitant]
     Indication: DRUG USE FOR UNKNOWN INDICATION
     Route: 065
  5. PROGRAF [Concomitant]
     Route: 065
  6. VALTREX [Concomitant]
     Indication: DRUG USE FOR UNKNOWN INDICATION
     Route: 065
  7. ZITHROMAX [Concomitant]
     Indication: DRUG USE FOR UNKNOWN INDICATION
     Route: 065
  8. ZITHROMAX [Concomitant]
     Route: 065
  9. BACTRIM DS [Concomitant]
     Indication: PROPHYLAXIS
     Route: 065
     Dates: end: 20091109
  10. MAGNESIUM PLUS PROTEIN [Concomitant]
     Indication: DRUG USE FOR UNKNOWN INDICATION
     Route: 048
  11. FOLIC ACID [Concomitant]
     Indication: DRUG USE FOR UNKNOWN INDICATION
     Route: 065
  12. ATIVAN [Concomitant]
     Indication: DRUG USE FOR UNKNOWN INDICATION
     Route: 065
  13. ASPIRIN [Concomitant]
     Indication: DRUG USE FOR UNKNOWN INDICATION
     Route: 065
     Dates: start: 20091101
  14. IMODIUM [Concomitant]
     Indication: DRUG USE FOR UNKNOWN INDICATION
     Route: 048
  15. PEPCID [Concomitant]
     Indication: DRUG USE FOR UNKNOWN INDICATION
     Route: 065
  16. MEPRON [Concomitant]
     Indication: PROPHYLAXIS
     Route: 065
     Dates: start: 20091101
  17. FLUCONAZOLE [Concomitant]
     Indication: DRUG USE FOR UNKNOWN INDICATION
     Route: 065
  18. VFEND [Concomitant]
     Indication: ANTIFUNGAL PROPHYLAXIS
     Route: 065
     Dates: start: 20091101
  19. BLOOD TRANSFUSION [Concomitant]
     Route: 051
     Dates: start: 20091119, end: 20091119
  20. BLOOD TRANSFUSION [Concomitant]
     Route: 051
     Dates: start: 20091124, end: 20091124

REACTIONS (1)
  - GRAFT VERSUS HOST DISEASE [None]
